FAERS Safety Report 24224530 (Version 1)
Quarter: 2024Q3

REPORT INFORMATION
  Report Type: Spontaneous
  Country: US (occurrence: US)
  Receive Date: 20240819
  Receipt Date: 20240819
  Transmission Date: 20241017
  Serious: No
  Sender: ELI LILLY AND CO
  Company Number: US-ELI_LILLY_AND_COMPANY-US202408007064

PATIENT
  Age: 56 Year

DRUGS (9)
  1. TRULICITY [Suspect]
     Active Substance: DULAGLUTIDE
     Indication: Diabetes mellitus management
     Dosage: UNK UNK, UNKNOWN
     Route: 065
     Dates: start: 202002, end: 202003
  2. TRULICITY [Suspect]
     Active Substance: DULAGLUTIDE
     Indication: Cardiovascular disorder
  3. TRULICITY [Suspect]
     Active Substance: DULAGLUTIDE
     Indication: Weight control
  4. RYBELSUS [Concomitant]
     Active Substance: SEMAGLUTIDE
     Indication: Diabetes mellitus management
     Dosage: UNK
     Dates: start: 202107
  5. RYBELSUS [Concomitant]
     Active Substance: SEMAGLUTIDE
     Indication: Cardiovascular disorder
  6. RYBELSUS [Concomitant]
     Active Substance: SEMAGLUTIDE
     Indication: Weight control
  7. OZEMPIC [Concomitant]
     Active Substance: SEMAGLUTIDE
     Indication: Diabetes mellitus management
     Dosage: UNK
     Dates: start: 202308
  8. OZEMPIC [Concomitant]
     Active Substance: SEMAGLUTIDE
     Indication: Cardiovascular disorder
  9. OZEMPIC [Concomitant]
     Active Substance: SEMAGLUTIDE
     Indication: Weight control

REACTIONS (4)
  - Impaired gastric emptying [Unknown]
  - Nausea [Unknown]
  - Vomiting [Unknown]
  - Diarrhoea [Unknown]
